FAERS Safety Report 16231501 (Version 2)
Quarter: 2019Q2

REPORT INFORMATION
  Report Type: Spontaneous
  Country: KR (occurrence: KR)
  Receive Date: 20190424
  Receipt Date: 20190626
  Transmission Date: 20190711
  Serious: Yes (Hospitalization, Other)
  Sender: FDA-Public Use
  Company Number: KR-009507513-1903KOR009589

PATIENT
  Age: 55 Year
  Sex: Female

DRUGS (42)
  1. KEYTRUDA [Suspect]
     Active Substance: PEMBROLIZUMAB
     Indication: FALLOPIAN TUBE CANCER
     Dosage: QUANTITY: 2, DAYS: 1
     Dates: start: 20190213
  2. SODIUM CHLORIDE. [Concomitant]
     Active Substance: SODIUM CHLORIDE
     Dosage: 20 ML, QUANTITY: 10, DAYS: 1
     Dates: start: 20190317
  3. KEYTRUDA [Suspect]
     Active Substance: PEMBROLIZUMAB
     Dosage: QUANTITY: 2, DAYS: 1
     Dates: start: 20190329
  4. DUROGESIC [Concomitant]
     Active Substance: FENTANYL
     Dosage: D-TRANS PATCH 12 MCG/H 5.25 CM2, QUANTITY: 1, DAYS: 1
     Dates: start: 20190420
  5. CURAN [Concomitant]
     Active Substance: RANITIDINE HYDROCHLORIDE
     Dosage: QUANTITY: 2, DAYS: 11
     Dates: start: 20190312, end: 20190322
  6. CAREGARGLE [Concomitant]
     Dosage: QUANTITY: 1, DAYS: 1
     Dates: start: 20190420
  7. DUPHALAC [Concomitant]
     Active Substance: LACTULOSE
     Dosage: QUANTITY: 2, DAYS: 10
     Dates: start: 20190210, end: 20190213
  8. LEVAN H OINTMENT (ALCLOXA (+) CHLORHEXIDINE HYDROCHLORIDE (+) ENOXOLON [Concomitant]
     Dosage: QUANTITY: 5, DAYS: 1
     Dates: start: 20190213
  9. DUROGESIC [Concomitant]
     Active Substance: FENTANYL
     Dosage: D-TRANS PATCH, QUANTITY: 1, DAYS: 8
     Dates: start: 20190306, end: 20190327
  10. DUROGESIC [Concomitant]
     Active Substance: FENTANYL
     Dosage: D-TRANS PATCH 50 MCG/H 21 CM2, QUANTITY: 10, DAYS: 1
     Dates: start: 20190502
  11. MACPERAN [Concomitant]
     Active Substance: METOCLOPRAMIDE HYDROCHLORIDE
     Dosage: QUANTITY: 6, DAYS: 5
     Dates: start: 20190213
  12. SODIUM CHLORIDE. [Concomitant]
     Active Substance: SODIUM CHLORIDE
     Dosage: 50 ML (BAG), QUANTITY: 3, DAYS: 1
     Dates: start: 20190213
  13. SODIUM CHLORIDE. [Concomitant]
     Active Substance: SODIUM CHLORIDE
     Dosage: 20 ML, QUANTITY: 2, DAYS: 2
     Dates: start: 20190318, end: 20190323
  14. PETHIDINE HCL HANA [Concomitant]
     Dosage: QUANTITY: 1, DAYS: 1
     Dates: start: 20180212
  15. CETAMADOL [Concomitant]
     Dosage: QUANTITY: 3, DAYS: 31
     Dates: start: 20190426, end: 20190502
  16. SODIUM CHLORIDE. [Concomitant]
     Active Substance: SODIUM CHLORIDE
     Dosage: QUANTITY: 3, DAYS: 1
     Dates: start: 20170325
  17. DUROGESIC [Concomitant]
     Active Substance: FENTANYL
     Dosage: D-TRANS PATCH 50 MCG/H 21 CM2, QUANTITY: 1, DAYS: 4
     Dates: start: 20190423, end: 20190501
  18. CAREGARGLE [Concomitant]
     Dosage: QUANTITY: 1, DAYS: 1
     Dates: start: 20190210
  19. CAREGARGLE [Concomitant]
     Dosage: QUANTITY: 5, DAYS: 1
     Dates: start: 20190213
  20. TARGIN [Concomitant]
     Active Substance: NALOXONE HYDROCHLORIDE\OXYCODONE HYDROCHLORIDE
     Dosage: QUANTITY: 2, DAYS: 10
     Route: 048
     Dates: start: 20190210, end: 20190210
  21. CETAMADOL [Concomitant]
     Dosage: QUANTITY: 3, DAYS: 24
     Route: 048
     Dates: start: 20190210, end: 20190213
  22. SODIUM CHLORIDE. [Concomitant]
     Active Substance: SODIUM CHLORIDE
     Dosage: 20 ML, QUANTITY: 1, DAYS: 1
     Dates: start: 20190316
  23. SODIUM CHLORIDE. [Concomitant]
     Active Substance: SODIUM CHLORIDE
     Dosage: 250 ML, QUANTITY: 1, DAYS: 1
     Dates: start: 20190422
  24. DUROGESIC [Concomitant]
     Active Substance: FENTANYL
     Dosage: 25MCG/H 10 CM2, QUANTITY 1 AND DAYS 1
     Dates: start: 20190210
  25. MEDILAC-DS [Concomitant]
     Dosage: QUANTITY: 2, DAYS: 24
     Route: 048
     Dates: start: 20190210, end: 20190213
  26. DULCOLAX NOS [Concomitant]
     Active Substance: BISACODYL OR DOCUSATE SODIUM
     Dosage: QUANTITY: 1, DAYS: 6
     Dates: start: 20190213
  27. SODIUM CHLORIDE. [Concomitant]
     Active Substance: SODIUM CHLORIDE
     Dosage: 50 ML (BAG), QUANTITY: 1, DAYS: 1
     Dates: start: 20190212
  28. SODIUM CHLORIDE. [Concomitant]
     Active Substance: SODIUM CHLORIDE
     Dosage: QUANTITY: 1, DAYS: 2
     Dates: start: 20190313, end: 20190317
  29. SODIUM CHLORIDE. [Concomitant]
     Active Substance: SODIUM CHLORIDE
     Dosage: 1000 ML, QUANTITY: 1, DAYS: 1
     Dates: start: 20190420
  30. KEYTRUDA [Suspect]
     Active Substance: PEMBROLIZUMAB
     Dosage: QUANTITY: 2, DAYS: 1
     Dates: start: 20190421
  31. DUROGESIC [Concomitant]
     Active Substance: FENTANYL
     Dosage: D-TRANS PATCH 25 MCG/H 10 CM2, QUANTITY: 10, DAYS: 1
     Dates: start: 20190502
  32. RESOLOR [Concomitant]
     Active Substance: PRUCALOPRIDE SUCCINATE
     Dosage: QUANTITY: 1, DAYS: 1
     Route: 048
     Dates: start: 20190210
  33. SYNTHYROXINE [Concomitant]
     Active Substance: LEVOTHYROXINE SODIUM
     Dosage: QUANTITY: 0.5, DAYS:  3
     Route: 048
     Dates: start: 20190210, end: 20190212
  34. DUROGESIC [Concomitant]
     Active Substance: FENTANYL
     Dosage: 25MCG/H 10 CM2, QUANTITY: 10, DAYS: 1
     Dates: start: 20190213
  35. CURAN [Concomitant]
     Active Substance: RANITIDINE HYDROCHLORIDE
     Dosage: QUANTITY: 1, DAYS: 1
     Route: 048
     Dates: start: 20190210
  36. CETAMADOL [Concomitant]
     Dosage: QUANTITY: 2, DAYS: 10
     Dates: start: 20190420, end: 20190501
  37. MACPERAN [Concomitant]
     Active Substance: METOCLOPRAMIDE HYDROCHLORIDE
     Dosage: QUANTITY: 1, DAYS: 3
     Dates: start: 20190427, end: 20190502
  38. SODIUM CHLORIDE. [Concomitant]
     Active Substance: SODIUM CHLORIDE
     Dosage: 1000ML (BAG), QUANITITY: 1, DAYS: 1
     Dates: start: 20190210, end: 20190213
  39. SODIUM CHLORIDE. [Concomitant]
     Active Substance: SODIUM CHLORIDE
     Dosage: 100 ML, QUANTITY: 2, DAYS: 1
     Dates: start: 20190326
  40. SODIUM CHLORIDE. [Concomitant]
     Active Substance: SODIUM CHLORIDE
     Dosage: 0.45G/50ML/BAG, QUANTITY: 3, DAYS: 1
     Dates: start: 20190421
  41. SODIUM CHLORIDE. [Concomitant]
     Active Substance: SODIUM CHLORIDE
     Dosage: QUANTITY: 1, DAYS: 2
     Dates: start: 20190421, end: 20190422
  42. CHLORPHENIRAMINE MALEATE. [Concomitant]
     Active Substance: CHLORPHENIRAMINE MALEATE
     Dosage: QUANTITY: 1, DAYS: 1
     Dates: start: 20190211

REACTIONS (5)
  - Transfusion [Unknown]
  - Intestinal fistula [Unknown]
  - Adverse event [Unknown]
  - Inappropriate schedule of product administration [Unknown]
  - Product use in unapproved indication [Unknown]

NARRATIVE: CASE EVENT DATE: 2019
